FAERS Safety Report 10485565 (Version 2)
Quarter: 2014Q4

REPORT INFORMATION
  Report Type: Spontaneous
  Country: DE (occurrence: DE)
  Receive Date: 20140930
  Receipt Date: 20141017
  Transmission Date: 20150528
  Serious: Yes (Hospitalization, Other)
  Sender: FDA-Public Use
  Company Number: DE-BRISTOL-MYERS SQUIBB COMPANY-21434477

PATIENT
  Age: 88 Year
  Sex: Female
  Weight: 85 kg

DRUGS (3)
  1. ELIQUIS [Suspect]
     Active Substance: APIXABAN
     Dosage: 16-SEP-2014-20-SEP-2014
     Dates: start: 20140916, end: 20140920
  2. RAMIPRIL. [Concomitant]
     Active Substance: RAMIPRIL
  3. FUROSEMIDE. [Concomitant]
     Active Substance: FUROSEMIDE

REACTIONS (8)
  - Oxygen saturation decreased [Unknown]
  - Myocardial infarction [Unknown]
  - Dermatitis allergic [Unknown]
  - Abdominal pain upper [Recovered/Resolved]
  - Vomiting [Recovered/Resolved]
  - Abdominal distension [Unknown]
  - Dyspnoea [Recovered/Resolved]
  - Nausea [Recovered/Resolved]

NARRATIVE: CASE EVENT DATE: 20140920
